FAERS Safety Report 5139388-5 (Version None)
Quarter: 2006Q4

REPORT INFORMATION
  Report Type: 
  Country: None (occurrence: None)
  Receive Date: 20061030
  Receipt Date: 20050902
  Transmission Date: 20070319
  Serious: No
  Sender: FDA-Public Use
  Company Number: US-GLAXOSMITHKLINE-A0572874A

PATIENT
  Age: 69 Year
  Sex: Female

DRUGS (4)
  1. SEREVENT [Suspect]
     Indication: ASTHMA
     Dosage: 1PUFF TWICE PER DAY
     Route: 055
     Dates: start: 20020101
  2. AVAPRO [Concomitant]
  3. GLUCOPHAGE [Concomitant]
  4. COREG [Concomitant]

REACTIONS (2)
  - CHEST DISCOMFORT [None]
  - DRUG INEFFECTIVE [None]
